FAERS Safety Report 17367007 (Version 1)
Quarter: 2020Q1

REPORT INFORMATION
  Report Type: Spontaneous
  Country: US (occurrence: US)
  Receive Date: 20200204
  Receipt Date: 20200204
  Transmission Date: 20200409
  Serious: Yes (Death)
  Sender: FDA-Public Use
  Company Number: US-CELGENEUS-USA-20200200303

PATIENT
  Age: 55 Year
  Sex: Male

DRUGS (1)
  1. POMALYST [Suspect]
     Active Substance: POMALIDOMIDE
     Indication: PLASMA CELL MYELOMA
     Dosage: 3 MILLIGRAM
     Route: 048
     Dates: start: 20190710

REACTIONS (7)
  - Tachycardia [Fatal]
  - Epistaxis [Fatal]
  - Acute kidney injury [Fatal]
  - Pyrexia [Fatal]
  - Lactic acidosis [Fatal]
  - Pancytopenia [Fatal]
  - Mental status changes [Fatal]
